FAERS Safety Report 20109635 (Version 1)
Quarter: 2021Q4

REPORT INFORMATION
  Report Type: Spontaneous
  Country: PL (occurrence: PL)
  Receive Date: 20211124
  Receipt Date: 20211124
  Transmission Date: 20220303
  Serious: Yes (Other)
  Sender: FDA-Public Use
  Company Number: PL-GEN-2021-1446

PATIENT
  Age: 31 Year
  Sex: Male

DRUGS (8)
  1. METHYLPREDNISOLONE [Suspect]
     Active Substance: METHYLPREDNISOLONE
     Dosage: 8 MG, 2X/DAY (2 X 8 MG)
  2. DEXTROMETHORPHAN HYDROBROMIDE [Concomitant]
     Active Substance: DEXTROMETHORPHAN HYDROBROMIDE
     Indication: Antitussive therapy
     Dosage: 30 MG, 3X/DAY (3 X 30 MG)
  3. OMEPRAZOLE [Concomitant]
     Active Substance: OMEPRAZOLE
     Dosage: 20 MG, 2X/DAY (2 X 20 MG)
  4. ESCITALOPRAM OXALATE [Concomitant]
     Active Substance: ESCITALOPRAM OXALATE
     Indication: Depression
     Dosage: 10 MG
  5. CLARITHROMYCIN [Concomitant]
     Active Substance: CLARITHROMYCIN
     Indication: Cough
     Dosage: 500 MG, 2X/DAY (2 X 500 MG)
     Route: 048
  6. AMOXICILLIN\CLAVULANIC ACID [Interacting]
     Active Substance: AMOXICILLIN\CLAVULANIC ACID
     Dosage: 1000 MG, 2X/DAY (2 X 1000 MG)
  7. AMLODIPINE\PERINDOPRIL [Concomitant]
     Active Substance: AMLODIPINE\PERINDOPRIL
     Indication: Hypertension
     Dosage: UNK
  8. CODEINE/SULFOGAIACOL [Concomitant]
     Dosage: 1 DF, 3X/DAY (3 X 1 TABLET)

REACTIONS (6)
  - Drug interaction [Unknown]
  - Cough [Recovered/Resolved]
  - Hyperhidrosis [Unknown]
  - Poor quality sleep [Unknown]
  - Irritability [Unknown]
  - Joint swelling [Unknown]
